FAERS Safety Report 10998946 (Version 3)
Quarter: 2016Q4

REPORT INFORMATION
  Report Type: Report from Study
  Country: US (occurrence: US)
  Receive Date: 20150408
  Receipt Date: 20161111
  Transmission Date: 20170206
  Serious: No
  Sender: FDA-Public Use
  Company Number: US-ALEXION-A201501260

PATIENT
  Age: 26 Year
  Sex: Female

DRUGS (2)
  1. SOLIRIS [Suspect]
     Active Substance: ECULIZUMAB
     Indication: HAEMOLYTIC URAEMIC SYNDROME
     Dosage: UNK, Q2W
     Route: 042
  2. SOLIRIS [Suspect]
     Active Substance: ECULIZUMAB
     Dosage: 1200 MG, Q3W
     Route: 042
     Dates: start: 20141024, end: 20161017

REACTIONS (4)
  - Inappropriate schedule of drug administration [Unknown]
  - Headache [Not Recovered/Not Resolved]
  - Malaise [Recovered/Resolved]
  - Migraine [Recovering/Resolving]

NARRATIVE: CASE EVENT DATE: 20141010
